FAERS Safety Report 20744709 (Version 1)
Quarter: 2022Q2

REPORT INFORMATION
  Report Type: Spontaneous
  Country: US (occurrence: None)
  Receive Date: 20220422
  Receipt Date: 20220422
  Transmission Date: 20220721
  Serious: Yes (Other)
  Sender: FDA-Public Use
  Company Number: None

PATIENT
  Age: 63 Year
  Sex: Female
  Weight: 66.7 kg

DRUGS (2)
  1. GAMUNEX [Suspect]
     Active Substance: HUMAN IMMUNOGLOBULIN G
     Indication: Demyelination
     Dosage: OTHER FREQUENCY : Q4W;?
     Route: 042
     Dates: start: 20220414, end: 20220421
  2. GAMUNEX-C [Suspect]
     Active Substance: HUMAN IMMUNOGLOBULIN G
     Indication: Demyelination
     Dosage: OTHER FREQUENCY : Q4W;?
     Route: 042
     Dates: start: 20220414, end: 20220421

REACTIONS (2)
  - Rash papular [None]
  - Infusion related reaction [None]

NARRATIVE: CASE EVENT DATE: 20220421
